FAERS Safety Report 6289460-1 (Version None)
Quarter: 2009Q3

REPORT INFORMATION
  Report Type: 
  Country: None (occurrence: None)
  Receive Date: 20090730
  Receipt Date: 20090723
  Transmission Date: 20100115
  Serious: Yes (Other)
  Sender: FDA-Public Use
  Company Number: ZA-BAYER-200918791GPV

PATIENT
  Age: 32 Year
  Sex: Female

DRUGS (1)
  1. MIRENA [Suspect]
     Indication: CONTRACEPTION
     Dosage: UNIT DOSE: 52 MG
     Route: 015
     Dates: start: 20080516, end: 20090409

REACTIONS (4)
  - AMENORRHOEA [None]
  - COMPLICATION OF PREGNANCY [None]
  - PREGNANCY WITH CONTRACEPTIVE DEVICE [None]
  - UTERINE HAEMORRHAGE [None]
